FAERS Safety Report 18014157 (Version 1)
Quarter: 2020Q3

REPORT INFORMATION
  Report Type: Spontaneous
  Country: ES (occurrence: ES)
  Receive Date: 20200713
  Receipt Date: 20200713
  Transmission Date: 20201103
  Serious: Yes (Other)
  Sender: FDA-Public Use
  Company Number: NVSC2020ES192282

PATIENT
  Age: 39 Year
  Sex: Female

DRUGS (1)
  1. ERELZI [Suspect]
     Active Substance: ETANERCEPT-SZZS
     Indication: POLYARTHRITIS
     Dosage: 50 MG, QW (4 JERINGAS PRECARGADAS DE 1 ML, DESCONOCIDO)
     Route: 058
     Dates: start: 20190213, end: 20190628

REACTIONS (1)
  - Cervix carcinoma [Recovered/Resolved with Sequelae]

NARRATIVE: CASE EVENT DATE: 20190429
